FAERS Safety Report 13690164 (Version 1)
Quarter: 2017Q2

REPORT INFORMATION
  Report Type: Spontaneous
  Country: GB (occurrence: GB)
  Receive Date: 20170626
  Receipt Date: 20170626
  Transmission Date: 20170830
  Serious: Yes (Hospitalization)
  Sender: FDA-Public Use
  Company Number: GB-MYLANLABS-2017M1036778

PATIENT

DRUGS (16)
  1. LANSOPRAZOLE. [Suspect]
     Active Substance: LANSOPRAZOLE
     Dosage: IN THE MORNING.
  2. MST CONTINUS [Concomitant]
     Active Substance: MORPHINE SULFATE
     Dosage: 10MG IN THE MORNING,  20MG AT NIGHT..
  3. ZOPICLONE [Concomitant]
     Active Substance: ZOPICLONE
     Dosage: AT NIGHT.
  4. LORAZEPAM. [Concomitant]
     Active Substance: LORAZEPAM
     Dosage: HALF A TABLET OR ONE TABLET AT NIGHT.
  5. DOCUSATE [Concomitant]
     Active Substance: DOCUSATE
  6. OXYBUTYNIN [Concomitant]
     Active Substance: OXYBUTYNIN
  7. TIOTROPIUM [Concomitant]
     Active Substance: TIOTROPIUM
  8. DESMOPRESSIN [Suspect]
     Active Substance: DESMOPRESSIN
     Dates: start: 20170310
  9. AIROMIR                            /00139502/ [Concomitant]
     Dosage: AUTOHALER 4 TIMES A DAY AS REQUIRED.
  10. LEVOTHYROXINE. [Concomitant]
     Active Substance: LEVOTHYROXINE
  11. SENNA                              /00142201/ [Concomitant]
     Active Substance: SENNA LEAF
     Dosage: AT NIGHT.
  12. ORAMORPH [Concomitant]
     Active Substance: MORPHINE SULFATE
     Dosage: 10MG/5ML ORAL SOLUTION 2.5 TO 5ML, 4 TO 6 HOURLY
  13. MORPHINE [Concomitant]
     Active Substance: MORPHINE
     Dosage: 10MG/5ML
  14. PARACETAMOL [Concomitant]
     Active Substance: ACETAMINOPHEN
     Dosage: FOUR TIMES A DAY.
  15. SERETIDE [Concomitant]
     Active Substance: FLUTICASONE PROPIONATE\SALMETEROL XINAFOATE
  16. PREGABALIN. [Concomitant]
     Active Substance: PREGABALIN

REACTIONS (1)
  - Hyponatraemia [Recovered/Resolved]

NARRATIVE: CASE EVENT DATE: 20170316
